FAERS Safety Report 9443559 (Version 2)
Quarter: 2013Q3

REPORT INFORMATION
  Report Type: Spontaneous
  Country: IT (occurrence: None)
  Receive Date: 20130802
  Receipt Date: 20130815
  Transmission Date: 20140515
  Serious: Yes (Other)
  Sender: FDA-Public Use
  Company Number: AUR-APL-2013-06450

PATIENT
  Age: 38 Year
  Sex: Female

DRUGS (5)
  1. SERTRALINE (SERTRALINE) [Suspect]
     Indication: DEPRESSION
     Route: 048
     Dates: start: 20130315, end: 20130707
  2. EN [Suspect]
  3. SURMONTIL [Suspect]
  4. HALDOL [Suspect]
  5. MUTABON (ETRAFON-D) [Concomitant]

REACTIONS (3)
  - Toxicity to various agents [None]
  - Drug abuse [None]
  - Suicidal ideation [None]
